FAERS Safety Report 22109042 (Version 2)
Quarter: 2023Q1

REPORT INFORMATION
  Report Type: Spontaneous
  Country: JP (occurrence: JP)
  Receive Date: 20230317
  Receipt Date: 20230328
  Transmission Date: 20230418
  Serious: Yes (Hospitalization, Other)
  Sender: FDA-Public Use
  Company Number: JP-GLAXOSMITHKLINE-JP2023JPN039279

PATIENT

DRUGS (4)
  1. SUMATRIPTAN SUCCINATE [Suspect]
     Active Substance: SUMATRIPTAN SUCCINATE
     Indication: Neck pain
     Dosage: UNK
     Route: 045
  2. SUMATRIPTAN SUCCINATE [Suspect]
     Active Substance: SUMATRIPTAN SUCCINATE
     Indication: Back pain
  3. SUMATRIPTAN SUCCINATE [Suspect]
     Active Substance: SUMATRIPTAN SUCCINATE
     Indication: Headache
  4. CLAZOSENTAN SODIUM [Concomitant]
     Active Substance: CLAZOSENTAN SODIUM
     Indication: Prophylaxis
     Dosage: UNK

REACTIONS (10)
  - Subarachnoid haemorrhage [Recovering/Resolving]
  - Fall [Unknown]
  - Binocular eye movement disorder [Unknown]
  - Decerebrate posture [Unknown]
  - Aortic dissection [Unknown]
  - Hypoxia [Unknown]
  - Pleural effusion [Recovering/Resolving]
  - Pulmonary oedema [Recovered/Resolved]
  - Cardiac dysfunction [Recovered/Resolved]
  - Basilar artery stenosis [Recovered/Resolved]
